FAERS Safety Report 6231987-2 (Version None)
Quarter: 2009Q2

REPORT INFORMATION
  Report Type: 
  Country: None (occurrence: None)
  Receive Date: 20090616
  Receipt Date: 20090604
  Transmission Date: 20091009
  Serious: Yes (Other)
  Sender: FDA-Public Use
  Company Number: US-PFIZER INC-2007104431

PATIENT
  Sex: Female
  Weight: 68 kg

DRUGS (5)
  1. XANAX [Suspect]
     Indication: DEPRESSION
     Dosage: 0.25 MG, 3X/DAY
     Dates: start: 20070401
  2. XANAX [Suspect]
     Indication: ANXIETY
  3. NARDIL [Suspect]
     Dosage: UNK
     Dates: start: 19870101
  4. DRUG, UNSPECIFIED [Suspect]
     Indication: HERNIA
  5. ANTIHYPERTENSIVES [Suspect]
     Indication: HYPERTENSION

REACTIONS (9)
  - ANXIETY [None]
  - DEPENDENCE [None]
  - DEPRESSION [None]
  - DRUG INEFFECTIVE [None]
  - FEELING ABNORMAL [None]
  - HERNIA [None]
  - HYPERTENSION [None]
  - NERVOUSNESS [None]
  - WITHDRAWAL SYNDROME [None]
